FAERS Safety Report 9656132 (Version 4)
Quarter: 2015Q1

REPORT INFORMATION
  Report Type: Report from Study
  Country: IN (occurrence: IN)
  Receive Date: 20131030
  Receipt Date: 20150206
  Transmission Date: 20150721
  Serious: Yes (Hospitalization, Other)
  Sender: FDA-Public Use
  Company Number: PHHY2013IN122178

PATIENT
  Age: 65 Year
  Sex: Male
  Weight: 64.4 kg

DRUGS (18)
  1. ACLASTA [Suspect]
     Active Substance: ZOLEDRONIC ACID
     Indication: OSTEOPOROSIS
     Dosage: 5 MG
     Route: 042
     Dates: start: 20120107
  2. CARDACE [Concomitant]
     Active Substance: RAMIPRIL
     Dosage: 5 MG, ONCE DAILY MORNING
     Route: 065
  3. LASILACTONE [Concomitant]
     Active Substance: FUROSEMIDE\SPIRONOLACTONE
     Indication: FLUID RETENTION
     Dosage: 0.5 DF, ONCE DAILY MORNING
     Route: 048
     Dates: start: 201302
  4. PANTOPRAZOLE [Concomitant]
     Active Substance: PANTOPRAZOLE SODIUM
     Indication: ULCER
     Dosage: 40 MG
     Route: 048
     Dates: start: 201201
  5. ATARAX [Concomitant]
     Active Substance: HYDROXYZINE\HYDROXYZINE HYDROCHLORIDE
     Indication: ANTIALLERGIC THERAPY
     Dosage: 1 DF
     Route: 048
     Dates: start: 201302, end: 20131022
  6. HYDROXYCHLOROQUINE [Concomitant]
     Active Substance: HYDROXYCHLOROQUINE
     Indication: RHEUMATOID ARTHRITIS
     Dosage: 1 DF, QD
     Route: 065
     Dates: start: 201201
  7. FERIUM-XT [Concomitant]
     Indication: MINERAL SUPPLEMENTATION
     Dosage: BID FOR 3 WEEKS
     Route: 065
     Dates: start: 20131024
  8. SIGNOFLAM [Concomitant]
     Indication: ANTIINFLAMMATORY THERAPY
     Dosage: 1 DF, TID
     Route: 065
     Dates: start: 20131024, end: 20131028
  9. ANXIT PLUS [Concomitant]
     Indication: ANXIETY
     Dosage: 1 DF
     Route: 048
     Dates: start: 201302
  10. GEMCAL [Concomitant]
     Active Substance: CALCIUM
     Indication: VITAMIN SUPPLEMENTATION
     Dosage: 1 DF
     Route: 048
     Dates: start: 20131022
  11. METFORMIN HCL [Concomitant]
     Active Substance: METFORMIN HYDROCHLORIDE
     Indication: DIABETES MELLITUS
     Dosage: 500 MG, BID
     Route: 065
     Dates: start: 201302
  12. ULTRACET [Concomitant]
     Active Substance: ACETAMINOPHEN\TRAMADOL HYDROCHLORIDE
     Indication: PAIN
     Dosage: 1 DF, TID
     Route: 065
     Dates: start: 20131024, end: 20131028
  13. CARDACE [Concomitant]
     Active Substance: RAMIPRIL
     Indication: HYPERTENSION
     Dosage: 2.5 MG
     Route: 048
     Dates: start: 201201
  14. FOSAVANCE [Concomitant]
     Active Substance: ALENDRONATE SODIUM\CHOLECALCIFEROL
     Indication: OSTEOPOROSIS
     Dosage: ONCE A WEEK
     Route: 065
     Dates: start: 20131022
  15. RABLET [Concomitant]
     Active Substance: RABEPRAZOLE
     Indication: ULCER
     Dosage: 20 MG
     Route: 048
     Dates: start: 20131024, end: 20131028
  16. INAPURE [Concomitant]
     Indication: ANGINA PECTORIS
     Dosage: 5 MG, BID
     Route: 065
     Dates: start: 20131024
  17. SHELCAL [Concomitant]
     Indication: MINERAL SUPPLEMENTATION
     Dosage: 1 DF
     Route: 048
     Dates: start: 201201
  18. CETIL//CEFUROXIME SODIUM [Concomitant]
     Indication: PROPHYLAXIS
     Dosage: 500 MG, BID
     Route: 065
     Dates: start: 20131024, end: 20131028

REACTIONS (7)
  - Tricuspid valve incompetence [Recovered/Resolved]
  - Arthralgia [Recovered/Resolved]
  - Movement disorder [Recovered/Resolved]
  - Ventricular hypokinesia [Recovered/Resolved]
  - Systolic dysfunction [Recovered/Resolved]
  - Osteonecrosis [Recovered/Resolved]
  - Mitral valve incompetence [Recovered/Resolved]

NARRATIVE: CASE EVENT DATE: 20131022
